FAERS Safety Report 20506544 (Version 1)
Quarter: 2022Q1

REPORT INFORMATION
  Report Type: Spontaneous
  Country: NL (occurrence: NL)
  Receive Date: 20220223
  Receipt Date: 20220223
  Transmission Date: 20220424
  Serious: Yes (Disabling)
  Sender: FDA-Public Use
  Company Number: None

PATIENT
  Age: 80 Year
  Sex: Male
  Weight: 90 kg

DRUGS (1)
  1. OXYCODONE [Suspect]
     Active Substance: OXYCODONE
     Indication: Pain
     Dosage: 2 DOSAGE FORMS DAILY;
     Dates: start: 20220124, end: 20220125

REACTIONS (7)
  - Asthenia [Unknown]
  - Abdominal pain [Unknown]
  - Balance disorder [Unknown]
  - Confusional state [Unknown]
  - Dizziness [Unknown]
  - Physical disability [Unknown]
  - Incontinence [Unknown]

NARRATIVE: CASE EVENT DATE: 20220125
